FAERS Safety Report 26216391 (Version 1)
Quarter: 2025Q4

REPORT INFORMATION
  Report Type: Other
  Country: PE (occurrence: PE)
  Receive Date: 20251231
  Receipt Date: 20251231
  Transmission Date: 20260118
  Serious: Yes (Hospitalization)
  Sender: ESJAY PHARMA
  Company Number: PE-ESJAY PHARMA-001025

PATIENT
  Age: 51 Year
  Sex: Male

DRUGS (16)
  1. FUROSEMIDE [Suspect]
     Active Substance: FUROSEMIDE
     Indication: Diuretic therapy
     Route: 042
  2. AMPICILLIN [Concomitant]
     Active Substance: AMPICILLIN
     Indication: Endocarditis
     Route: 042
  3. CEFTRIAXONE [Concomitant]
     Active Substance: CEFTRIAXONE
     Indication: Endocarditis
     Route: 042
  4. NOREPINEPHRINE [Concomitant]
     Active Substance: NOREPINEPHRINE
     Indication: Cardiogenic shock
     Dosage: UP TO 0.8 MICROGRAMS PER KILOGRAM
  5. EPINEPHRINE [Concomitant]
     Active Substance: EPINEPHRINE
     Indication: Cardiogenic shock
     Dosage: EPI UP TO 0.3 MICROGRAMS PER KILOGRAM
  6. AMIODARONE [Concomitant]
     Active Substance: AMIODARONE
     Indication: Atrial fibrillation
     Route: 042
  7. Ceftazidime / Avibactam [Concomitant]
     Indication: Systemic candida
     Dosage: 2.5 G/0.5 G
     Route: 042
  8. AZTREONAM [Concomitant]
     Active Substance: AZTREONAM
     Indication: Systemic candida
     Route: 042
  9. METRONIDAZOLE [Concomitant]
     Active Substance: METRONIDAZOLE
     Indication: Systemic candida
     Route: 042
  10. VANCOMYCIN [Concomitant]
     Active Substance: VANCOMYCIN
     Indication: Systemic candida
     Route: 042
  11. CASPOFUNGIN [Concomitant]
     Active Substance: CASPOFUNGIN
     Indication: Systemic candida
     Dosage: LOADING DOSE
     Route: 042
  12. CASPOFUNGIN [Concomitant]
     Active Substance: CASPOFUNGIN
     Indication: Systemic candida
     Route: 042
  13. NOREPINEPHRINE [Concomitant]
     Active Substance: NOREPINEPHRINE
     Indication: Septic shock
     Dosage: UP TO 0.8 MICROGRAMS PER KILOGRAM
  14. EPINEPHRINE [Concomitant]
     Active Substance: EPINEPHRINE
     Indication: Septic shock
     Dosage: EPI UP TO 0.3 MICROGRAMS PER KILOGRAM
  15. FUROSEMIDE [Suspect]
     Active Substance: FUROSEMIDE
     Indication: Diuretic therapy
     Dosage: MAXIMAL DIURETIC THERAPY
     Route: 042
  16. FUROSEMIDE [Suspect]
     Active Substance: FUROSEMIDE
     Indication: Diuretic therapy
     Dosage: (UPTO 480 MG/DAY)

REACTIONS (1)
  - Drug resistance [Unknown]
